FAERS Safety Report 17611729 (Version 1)
Quarter: 2020Q2

REPORT INFORMATION
  Report Type: Spontaneous
  Country: US (occurrence: US)
  Receive Date: 20200401
  Receipt Date: 20200401
  Transmission Date: 20200713
  Serious: No
  Sender: FDA-Public Use
  Company Number: US-TEIKOKU PHARMA USA-TPU2020-00165

PATIENT
  Sex: Female

DRUGS (4)
  1. LIDOCAINE PATCH [Suspect]
     Active Substance: LIDOCAINE
     Indication: RIB FRACTURE
     Dosage: APPLY ONE TO AFFECTED AREA FOR 12 HOURS AND THEN OFF FOR 12 HOURS
     Route: 061
  2. TYLENOL [Concomitant]
     Active Substance: ACETAMINOPHEN
     Indication: PAIN
  3. IBUPROFEN. [Concomitant]
     Active Substance: IBUPROFEN
     Dosage: OVER THE COUNTER, PATIENT REFUSED TO GIVE DOSAGE
  4. OXYCODONE [Concomitant]
     Active Substance: OXYCODONE
     Indication: PAIN
     Dosage: 5 MG BY MOUTH Q6H AS NEEDED FOR SEVERE PAIN
     Route: 048

REACTIONS (1)
  - Product dose omission [Unknown]
